FAERS Safety Report 9404342 (Version 1)
Quarter: 2013Q3

REPORT INFORMATION
  Report Type: Spontaneous
  Country: US (occurrence: None)
  Receive Date: 20130711
  Receipt Date: 20130711
  Transmission Date: 20140515
  Serious: Yes (Hospitalization)
  Sender: FDA-Public Use
  Company Number: PRED20130039

PATIENT
  Age: 80 Year
  Sex: Male

DRUGS (16)
  1. PREDNISONE [Suspect]
  2. PREDNISONE [Suspect]
  3. CYCLOPHOSPHAMIDE [Suspect]
  4. CYCLOPHOSPHAMIDE [Suspect]
  5. HYDROXYDANORUBICIN (DOXORUBICIN)(DOXORUBICIN) [Suspect]
  6. HYDROXYDANORUBICIN (DOXORUBICIN)(DOXORUBICIN) [Suspect]
  7. ONCOVIN [Suspect]
  8. ONCOVIN [Suspect]
  9. RITUXAN [Suspect]
  10. RITUXAN [Suspect]
  11. IFOSFAMIDE [Suspect]
  12. IFOSFAMIDE [Suspect]
  13. CARBOPLATIN [Suspect]
  14. CARBOPLATIN [Suspect]
  15. ETOPOSIDE [Suspect]
  16. ETOPOSIDE [Suspect]

REACTIONS (2)
  - Leukopenia [None]
  - Bone marrow failure [None]
